FAERS Safety Report 4722017-X (Version None)
Quarter: 2005Q3

REPORT INFORMATION
  Report Type: 
  Country: None (occurrence: None)
  Receive Date: 20050722
  Receipt Date: 20041019
  Transmission Date: 20060218
  Serious: Yes (Hospitalization, Disabling)
  Sender: FDA-Public Use
  Company Number: US-ROCHE-383710

PATIENT
  Age: 30 Year
  Sex: Male

DRUGS (1)
  1. ACCUTANE [Suspect]
     Indication: ACNE
     Dosage: DOSING REGIMEN: VARIES.
     Route: 048
     Dates: start: 20020402, end: 20020615

REACTIONS (19)
  - ABDOMINAL PAIN [None]
  - APPENDICITIS [None]
  - CHOLECYSTITIS [None]
  - CLOSTRIDIAL INFECTION [None]
  - COLITIS [None]
  - DUODENITIS [None]
  - DYSPEPSIA [None]
  - GASTRIC DISORDER [None]
  - GASTROINTESTINAL DISORDER [None]
  - HEADACHE [None]
  - HIATUS HERNIA [None]
  - ILEUS [None]
  - INFLAMMATORY BOWEL DISEASE [None]
  - INSOMNIA [None]
  - NAUSEA [None]
  - OESOPHAGITIS [None]
  - RED BLOOD CELL COUNT DECREASED [None]
  - UMBILICAL HERNIA [None]
  - VOMITING [None]
